FAERS Safety Report 8424165-X (Version None)
Quarter: 2012Q2

REPORT INFORMATION
  Report Type: 
  Country: None (occurrence: None)
  Receive Date: 20120608
  Receipt Date: 20120302
  Transmission Date: 20120825
  Serious: No
  Sender: FDA-Public Use
  Company Number: US-ASTRAZENECA-2012SE14921

PATIENT
  Age: 66 Year
  Sex: Male

DRUGS (1)
  1. PULMICORT FLEXHALER [Suspect]
     Indication: ASTHMA
     Route: 055

REACTIONS (4)
  - SPEECH DISORDER [None]
  - COUGH [None]
  - OFF LABEL USE [None]
  - EXPIRED DRUG ADMINISTERED [None]
